FAERS Safety Report 14671581 (Version 1)
Quarter: 2018Q1

REPORT INFORMATION
  Report Type: Spontaneous
  Country: JP (occurrence: JP)
  Receive Date: 20180323
  Receipt Date: 20180323
  Transmission Date: 20180509
  Serious: No
  Sender: FDA-Public Use
  Company Number: JP-LUPIN PHARMACEUTICALS INC.-2017-01841

PATIENT
  Age: 70 Year
  Sex: Male
  Weight: 59 kg

DRUGS (1)
  1. SERTRALINE [Suspect]
     Active Substance: SERTRALINE HYDROCHLORIDE
     Indication: PANIC DISORDER
     Dosage: 1 DF, UNK
     Route: 065

REACTIONS (4)
  - Hyperhidrosis [Recovering/Resolving]
  - Abdominal symptom [Recovering/Resolving]
  - Nausea [Recovering/Resolving]
  - Heart rate irregular [Recovering/Resolving]
